FAERS Safety Report 6048187-1 (Version None)
Quarter: 2009Q1

REPORT INFORMATION
  Report Type: 
  Country: None (occurrence: None)
  Receive Date: 20090123
  Receipt Date: 20090114
  Transmission Date: 20090719
  Serious: Yes (Other)
  Sender: FDA-Public Use
  Company Number: JP-AVENTIS-200910036JP

PATIENT
  Age: 38 Year
  Sex: Female
  Weight: 49 kg

DRUGS (11)
  1. TAXOTERE [Suspect]
     Route: 041
     Dates: start: 20081031, end: 20081216
  2. EPIRUBICIN [Concomitant]
     Dates: start: 20080805, end: 20080805
  3. EPIRUBICIN [Concomitant]
     Dates: start: 20080826, end: 20080826
  4. EPIRUBICIN [Concomitant]
     Dates: start: 20080916, end: 20080916
  5. EPIRUBICIN [Concomitant]
     Dates: start: 20081007, end: 20081007
  6. CYCLOPHOSPHAMIDE [Concomitant]
     Dates: start: 20080805, end: 20080805
  7. CYCLOPHOSPHAMIDE [Concomitant]
     Dates: start: 20080826, end: 20080826
  8. CYCLOPHOSPHAMIDE [Concomitant]
     Dates: start: 20080916, end: 20080916
  9. CYCLOPHOSPHAMIDE [Concomitant]
     Dates: start: 20081007, end: 20081007
  10. DECADRON [Concomitant]
  11. KYTRIL                             /01178101/ [Concomitant]

REACTIONS (2)
  - COLLAGEN DISORDER [None]
  - NEUTROPENIA [None]
